FAERS Safety Report 4882758-0 (Version None)
Quarter: 2005Q4

REPORT INFORMATION
  Report Type: 
  Country: None (occurrence: None)
  Receive Date: 20051201
  Receipt Date: 20050916
  Transmission Date: 20060501
  Serious: No
  Sender: FDA-Public Use
  Company Number: 2005PV002193

PATIENT
  Age: 60 Year
  Sex: Female
  Weight: 62.5964 kg

DRUGS (13)
  1. BYETTA [Suspect]
     Indication: DIABETES MELLITUS NON-INSULIN-DEPENDENT
     Dosage: 5 MCG; BID; SC
     Route: 058
     Dates: start: 20050915, end: 20050915
  2. AMARYL [Concomitant]
  3. AVANDIA [Concomitant]
  4. INSULIN [Concomitant]
  5. PRINIVIL [Concomitant]
  6. ESTRADIOL INJ [Concomitant]
  7. PROMETRIUM [Concomitant]
  8. TRICOR [Concomitant]
  9. ZETIA [Concomitant]
  10. MULTIVITAMIN [Concomitant]
  11. CALCIUM + D [Concomitant]
  12. VISION FORMULA [Concomitant]
  13. GLUCOSAMINE W/CHONDROITIN SULFATES [Concomitant]

REACTIONS (3)
  - DISORIENTATION [None]
  - DIZZINESS [None]
  - HYPOGLYCAEMIA [None]
